FAERS Safety Report 7293249-4 (Version None)
Quarter: 2011Q1

REPORT INFORMATION
  Report Type: 
  Country: None (occurrence: None)
  Receive Date: 20110215
  Receipt Date: 20110214
  Transmission Date: 20110831
  Serious: Yes (Death)
  Sender: FDA-Public Use
  Company Number: ZA-ROCHE-757691

PATIENT

DRUGS (1)
  1. MIRCERA [Suspect]
     Dosage: DOSE AND FREQUENCY: NOT REPORTED
     Route: 065
     Dates: end: 20100201

REACTIONS (1)
  - MYOCARDIAL INFARCTION [None]
